FAERS Safety Report 6357512-3 (Version None)
Quarter: 2009Q3

REPORT INFORMATION
  Report Type: 
  Country: None (occurrence: None)
  Receive Date: 20090916
  Receipt Date: 20090909
  Transmission Date: 20100115
  Serious: Yes (Hospitalization)
  Sender: FDA-Public Use
  Company Number: FR-JNJFOC-20090903705

PATIENT
  Age: 64 Year
  Sex: Male

DRUGS (13)
  1. REMICADE [Suspect]
     Dosage: 6TH INFUSION
     Route: 042
     Dates: start: 20090101, end: 20090630
  2. REMICADE [Suspect]
     Indication: SEBORRHOEIC DERMATITIS
     Route: 042
     Dates: start: 20090101, end: 20090630
  3. PREVISCAN [Concomitant]
  4. ZYRTEC [Concomitant]
  5. MYCOSTER [Concomitant]
  6. LEXOMIL [Concomitant]
  7. IMOVANE [Concomitant]
  8. ZYPREXA [Concomitant]
  9. NORSET [Concomitant]
  10. NEURONTIN [Concomitant]
     Route: 048
  11. AMLODIPINE [Concomitant]
  12. TAHOR [Concomitant]
  13. COKENZEN [Concomitant]

REACTIONS (2)
  - NEPHROLITHIASIS [None]
  - RENAL COLIC [None]
